FAERS Safety Report 24739485 (Version 1)
Quarter: 2024Q4

REPORT INFORMATION
  Report Type: Spontaneous
  Country: US (occurrence: None)
  Receive Date: 20241216
  Receipt Date: 20241216
  Transmission Date: 20250115
  Serious: No
  Sender: Public
  Company Number: None

PATIENT
  Age: 56 Year
  Sex: Male

DRUGS (1)
  1. TOPIRAMATE [Suspect]
     Active Substance: TOPIRAMATE
     Indication: Binge eating
     Dates: start: 20230221, end: 20240906

REACTIONS (1)
  - Metabolic acidosis [None]

NARRATIVE: CASE EVENT DATE: 20240903
